FAERS Safety Report 11143687 (Version 1)
Quarter: 2015Q2

REPORT INFORMATION
  Report Type: Spontaneous
  Country: US (occurrence: None)
  Receive Date: 20150527
  Receipt Date: 20150527
  Transmission Date: 20150821
  Serious: Yes (Hospitalization)
  Sender: FDA-Public Use
  Company Number: None

PATIENT
  Age: 58 Year
  Sex: Male
  Weight: 84.7 kg

DRUGS (1)
  1. ERBITUX [Suspect]
     Active Substance: CETUXIMAB
     Dates: end: 20110607

REACTIONS (5)
  - Culture positive [None]
  - Alpha haemolytic streptococcal infection [None]
  - Staphylococcal infection [None]
  - Osteoradionecrosis [None]
  - Skin necrosis [None]

NARRATIVE: CASE EVENT DATE: 20150311
